FAERS Safety Report 5249859-9 (Version None)
Quarter: 2007Q1

REPORT INFORMATION
  Report Type: 
  Country: None (occurrence: None)
  Receive Date: 20070228
  Receipt Date: 20070223
  Transmission Date: 20070707
  Serious: Yes (Other)
  Sender: FDA-Public Use
  Company Number: HK-GLAXOSMITHKLINE-B0459479A

PATIENT
  Sex: Female

DRUGS (3)
  1. LAMICTAL [Suspect]
     Indication: DRUG USE FOR UNKNOWN INDICATION
     Route: 065
  2. LITHIUM CARBONATE [Concomitant]
     Dosage: 1000MG PER DAY
     Route: 065
  3. SEROQUEL [Concomitant]
     Dosage: 50MG AT NIGHT
     Route: 065

REACTIONS (2)
  - PNEUMONIA STREPTOCOCCAL [None]
  - PYREXIA [None]
